FAERS Safety Report 7480684-4 (Version None)
Quarter: 2011Q2

REPORT INFORMATION
  Report Type: 
  Country: None (occurrence: None)
  Receive Date: 20110516
  Receipt Date: 20100923
  Transmission Date: 20111010
  Serious: Yes (Hospitalization, Disabling, Other)
  Sender: FDA-Public Use
  Company Number: US-BAYER-201025409NA

PATIENT
  Age: 18 Year
  Sex: Female
  Weight: 49 kg

DRUGS (20)
  1. YASMIN [Suspect]
     Dosage: UNK
     Dates: start: 20080404, end: 20080629
  2. HYDROCORTISONE [Concomitant]
  3. LIDOCAINE HYDROCHLORIDE [Concomitant]
     Dates: start: 20070701
  4. YASMIN [Suspect]
     Indication: CONTRACEPTION
     Dosage: UNK
     Route: 048
     Dates: start: 20060601
  5. AZITHROMYCIN [Concomitant]
     Dates: start: 20051201
  6. CARISOPRODOL [Concomitant]
     Dates: start: 20070201
  7. TRIAMCINOLONE [Concomitant]
     Dates: start: 20070701
  8. HYDROXYZINE HCL [Concomitant]
     Dates: start: 20071201
  9. ANTIBIOTICS [Concomitant]
     Indication: HELICOBACTER INFECTION
  10. PHENAZOPYRIDINE HCL TAB [Concomitant]
  11. PREVPAC [Concomitant]
     Dates: start: 20071001
  12. PROTONIX [Concomitant]
     Dates: start: 20080301
  13. HYDROCODONE BITARTRATE AND ACETAMINOPHEN [Concomitant]
  14. YAZ [Suspect]
     Indication: CONTRACEPTION
     Route: 048
  15. DROSPIRENONE AND ETHINYL ESTRADIOL [Suspect]
     Indication: CONTRACEPTION
     Dosage: UNK
     Dates: start: 20080822, end: 20090807
  16. MOTRIN [Concomitant]
  17. HYDROCODONE BITARTRATE AND ACETAMINOPHEN [Concomitant]
  18. ADVIL LIQUI-GELS [Concomitant]
  19. BENZONATATE [Concomitant]
  20. BENZONATATE [Concomitant]

REACTIONS (6)
  - BILIARY DYSKINESIA [None]
  - ABDOMINAL PAIN UPPER [None]
  - WEIGHT DECREASED [None]
  - GALLBLADDER DISORDER [None]
  - NAUSEA [None]
  - APHAGIA [None]
